FAERS Safety Report 19362088 (Version 2)
Quarter: 2021Q2

REPORT INFORMATION
  Report Type: Spontaneous
  Country: NL (occurrence: DE)
  Receive Date: 20210601
  Receipt Date: 20210615
  Transmission Date: 20210717
  Serious: Yes (Life-Threatening, Hospitalization, Other)
  Sender: FDA-Public Use
  Company Number: DE-FRESENIUS KABI-FK202012600

PATIENT
  Age: 41 Year
  Sex: Female
  Weight: 100 kg

DRUGS (75)
  1. PARACETAMOL (MANUFACTURER UNKNOWN) [Suspect]
     Active Substance: ACETAMINOPHEN
     Indication: PRODUCT USED FOR UNKNOWN INDICATION
     Dosage: UNK
     Route: 065
  2. CYCLOPHOSPHAMIDE. [Suspect]
     Active Substance: CYCLOPHOSPHAMIDE
     Indication: HODGKIN^S DISEASE
     Dosage: 750 MG/M2
     Route: 065
     Dates: start: 20160113
  3. VALSARTAN. [Suspect]
     Active Substance: VALSARTAN
     Indication: HYPERTENSION
     Dosage: 160/12.5 MG
     Route: 065
     Dates: start: 201407, end: 201410
  4. HYDROCHLOROTHIAZIDE/VALSARTAN [Suspect]
     Active Substance: HYDROCHLOROTHIAZIDE\VALSARTAN
     Dosage: UNK
     Route: 065
     Dates: start: 20141014
  5. HYDROCHLOROTHIAZIDE/VALSARTAN [Suspect]
     Active Substance: HYDROCHLOROTHIAZIDE\VALSARTAN
     Dosage: UNK
     Route: 065
     Dates: start: 20160804
  6. PREDNISOLONE. [Suspect]
     Active Substance: PREDNISOLONE
     Indication: HODGKIN^S DISEASE
     Dosage: 40 MG MG/M2 (80 MG), DAY 1?14, DAILY
     Route: 065
     Dates: start: 20160113, end: 20160126
  7. BLEOMYCIN [Suspect]
     Active Substance: BLEOMYCIN SULFATE
     Indication: HODGKIN^S DISEASE
     Dosage: 10 MG/M2, DAY 8
     Route: 065
     Dates: start: 20160120
  8. ETOPOSIDE. [Suspect]
     Active Substance: ETOPOSIDE
     Indication: HODGKIN^S DISEASE
     Dosage: 100 MG/M2, DAY 1?3
     Route: 065
     Dates: start: 20160113
  9. PIRITRAMIDE [Suspect]
     Active Substance: PIRITRAMIDE
     Indication: PAIN IN EXTREMITY
  10. SULFAMETHOXAZOLE/TRIMETHOPRIM [Concomitant]
     Active Substance: SULFAMETHOXAZOLE\TRIMETHOPRIM
     Indication: PNEUMONIA
     Dosage: 1 DF, BID, DF (ON (SATURDAY AND SUNDAY)
     Route: 065
  11. HYDROMORPHONE HYDROCHLORIDE. [Concomitant]
     Active Substance: HYDROMORPHONE HYDROCHLORIDE
     Indication: PRODUCT USED FOR UNKNOWN INDICATION
     Dosage: 8MG, BID
     Route: 065
     Dates: end: 201511
  12. PREGABALIN. [Concomitant]
     Active Substance: PREGABALIN
     Indication: PRODUCT USED FOR UNKNOWN INDICATION
     Dosage: 1X 150, 2X DAILY (MORNING AND EVENING)
     Route: 065
  13. PREGABALIN. [Concomitant]
     Active Substance: PREGABALIN
     Dosage: 1X 150, 2X DAILY (MORNING AND EVENING)
     Route: 065
  14. PANTOPRAZOLE SODIUM SESQUIHYDRATE [Concomitant]
     Active Substance: PANTOPRAZOLE SODIUM
     Indication: PRODUCT USED FOR UNKNOWN INDICATION
     Dosage: 1X 40, 1X DAILY (MORNING)
     Route: 065
  15. PANTOPRAZOLE SODIUM SESQUIHYDRATE [Concomitant]
     Active Substance: PANTOPRAZOLE SODIUM
     Dosage: 1X 40, 1X DAILY (EVENING)
     Route: 065
  16. CLORAZEPATE DIPOTASSIUM. [Concomitant]
     Active Substance: CLORAZEPATE DIPOTASSIUM
     Dosage: 10 MG, BID (1X 10 MG, BID, 2X DAILY (MORNING AND EVENING)
     Route: 065
  17. CLORAZEPATE DIPOTASSIUM. [Concomitant]
     Active Substance: CLORAZEPATE DIPOTASSIUM
     Dosage: 10 MG, QD (1X 10 MG, QD, 1X DAILY (MORNING))
     Route: 065
  18. DIAZEPAM. [Suspect]
     Active Substance: DIAZEPAM
     Indication: PAIN IN EXTREMITY
  19. MORPHINE [Concomitant]
     Active Substance: MORPHINE
     Indication: PAIN
     Dosage: UNK, VIA PUMP
     Route: 065
  20. VALSARTAN. [Concomitant]
     Active Substance: VALSARTAN
     Dosage: UNK
     Route: 065
     Dates: start: 20130124
  21. HYDROCHLOROTHIAZIDE/VALSARTAN [Concomitant]
     Active Substance: HYDROCHLOROTHIAZIDE\VALSARTAN
     Indication: HYPERTENSION
     Dosage: UNK
     Route: 065
     Dates: start: 20170411
  22. CITALOPRAM [Concomitant]
     Active Substance: CITALOPRAM HYDROBROMIDE
     Indication: PRODUCT USED FOR UNKNOWN INDICATION
     Dosage: 1X 20, 1X DAILY (MORNING)
     Route: 065
  23. BACLOFEN. [Concomitant]
     Active Substance: BACLOFEN
     Dosage: 25 MG (1?1?1?1 ONCE IN MORNING, NOON, AFTERNOON, EVENING)
     Route: 048
     Dates: start: 20180102
  24. PEGFILGRASTIM [Suspect]
     Active Substance: PEGFILGRASTIM
     Indication: NEUTROPENIA
     Dosage: UNK
     Route: 058
     Dates: start: 20151212, end: 20151212
  25. VALSARTAN. [Suspect]
     Active Substance: VALSARTAN
     Dosage: 80 MG
     Route: 065
     Dates: start: 20140707
  26. HYDROCHLOROTHIAZIDE/VALSARTAN [Suspect]
     Active Substance: HYDROCHLOROTHIAZIDE\VALSARTAN
     Dosage: UNK
     Route: 065
     Dates: start: 20170112
  27. HYDROCHLOROTHIAZIDE/VALSARTAN [Suspect]
     Active Substance: HYDROCHLOROTHIAZIDE\VALSARTAN
     Dosage: UNK
     Route: 065
     Dates: start: 20160427
  28. DIAZEPAM. [Concomitant]
     Active Substance: DIAZEPAM
     Indication: PRODUCT USED FOR UNKNOWN INDICATION
     Dosage: 1X 2.5, QD, 1X DAILY (MORNING)
     Route: 065
  29. HYDROCHLOROTHIAZIDE/VALSARTAN [Concomitant]
     Active Substance: HYDROCHLOROTHIAZIDE\VALSARTAN
     Dosage: 160 MG / 12.5 MG
     Route: 065
     Dates: start: 201704, end: 2017
  30. CLORAZEPATE DIPOTASSIUM. [Concomitant]
     Active Substance: CLORAZEPATE DIPOTASSIUM
     Indication: PRODUCT USED FOR UNKNOWN INDICATION
     Dosage: 15 MG, QD (1X 15 MG, QD, 1X DAILY (EVENING OR NIGHT)
     Route: 065
  31. LEVOTHYROXINE. [Concomitant]
     Active Substance: LEVOTHYROXINE
     Indication: PRODUCT USED FOR UNKNOWN INDICATION
     Dosage: UNK
     Route: 065
  32. BACLOFEN. [Suspect]
     Active Substance: BACLOFEN
     Dosage: 200 UG, VIA PUMP
     Route: 058
  33. HYDROCHLOROTHIAZIDE/VALSARTAN [Suspect]
     Active Substance: HYDROCHLOROTHIAZIDE\VALSARTAN
     Dosage: UNK
     Route: 065
     Dates: start: 20140707
  34. DACARBAZINE. [Suspect]
     Active Substance: DACARBAZINE
     Indication: HODGKIN^S DISEASE
     Dosage: 375 MG/M2, DAY 1 AND DAY 15
     Route: 065
     Dates: start: 20151027, end: 201512
  35. PREGABALIN. [Concomitant]
     Active Substance: PREGABALIN
     Dosage: 1X 150, 1X, STOP DATE: FEB/MAR 2016
     Route: 065
     Dates: end: 2016
  36. PANTOPRAZOLE SODIUM SESQUIHYDRATE [Concomitant]
     Active Substance: PANTOPRAZOLE SODIUM
     Dosage: 40 MG, QD
     Route: 065
  37. CLONIDINE. [Concomitant]
     Active Substance: CLONIDINE
     Indication: PRODUCT USED FOR UNKNOWN INDICATION
     Dosage: 0.15 UG, BID (1?0?1 IN MORNINGA AND EVENING)
     Route: 065
  38. COLECALCIFEROL [Concomitant]
     Active Substance: CHOLECALCIFEROL
     Indication: PRODUCT USED FOR UNKNOWN INDICATION
     Dosage: 100 MG, (IN THE MORNING)
     Route: 048
  39. BACLOFEN. [Suspect]
     Active Substance: BACLOFEN
     Dosage: 200 UG, VIA PUMP
     Route: 058
  40. HYDROCHLOROTHIAZIDE/VALSARTAN [Suspect]
     Active Substance: HYDROCHLOROTHIAZIDE\VALSARTAN
     Dosage: 1 DF, QD (IN MORNING 1?0?0)
     Route: 065
     Dates: start: 201407, end: 201407
  41. ACETYLSALICYLIC ACID [Suspect]
     Active Substance: ASPIRIN
     Indication: PRODUCT USED FOR UNKNOWN INDICATION
     Dosage: UNK
     Route: 065
  42. DOXORUBICIN [Suspect]
     Active Substance: DOXORUBICIN
     Dosage: 25 MG/M2 (DAY 1)
     Route: 065
     Dates: start: 20160113
  43. LENOGRASTIM [Suspect]
     Active Substance: LENOGRASTIM
     Dosage: UNK
     Route: 065
     Dates: start: 201511
  44. PREGABALIN. [Concomitant]
     Active Substance: PREGABALIN
     Dosage: 1X 150, 1X, STOP DATE: FEB/MAR 2016
     Route: 065
     Dates: end: 2016
  45. PREGABALIN. [Concomitant]
     Active Substance: PREGABALIN
     Dosage: 2X 75, 1X DAILY (MORNING), START DATE: FEB/MAR 2016
     Route: 065
     Dates: start: 2016
  46. PREGABALIN. [Concomitant]
     Active Substance: PREGABALIN
     Dosage: 1X 75, 1X DAILY (EVENING), START DATE: FEB/MAR 2016
     Route: 065
     Dates: start: 2016
  47. DOMPERIDONE MALEATE [Concomitant]
     Active Substance: DOMPERIDONE MALEATE
     Dosage: 10 MG, ONCE IN THE MORNING, NOON AND EVENING
     Route: 048
  48. SODIUM BICARBONATE/POTASSIUM CHLORIDE/SODIUM CHLORIDE/MACROGOL 3350 [Concomitant]
     Active Substance: POLYETHYLENE GLYCOL 3350\POTASSIUM CHLORIDE\SODIUM BICARBONATE\SODIUM CHLORIDE
     Indication: PRODUCT USED FOR UNKNOWN INDICATION
     Dosage: 1 DF, SACHET, 1X IF NEEDED
     Route: 065
  49. BACLOFEN. [Suspect]
     Active Substance: BACLOFEN
     Indication: PRODUCT USED FOR UNKNOWN INDICATION
     Dosage: 200 UG/20 MG VIA PUMP (1?1?1)
     Route: 058
  50. HYDROCHLOROTHIAZIDE/VALSARTAN [Suspect]
     Active Substance: HYDROCHLOROTHIAZIDE\VALSARTAN
     Dosage: UNK
     Route: 065
     Dates: start: 20150102
  51. HYDROCHLOROTHIAZIDE/VALSARTAN [Suspect]
     Active Substance: HYDROCHLOROTHIAZIDE\VALSARTAN
     Dosage: 1 DF, QD (IN MORNING, 1?0?0)
     Route: 065
     Dates: start: 201410, end: 201704
  52. BLEOMYCIN [Suspect]
     Active Substance: BLEOMYCIN SULFATE
     Dosage: 25 MG/M2 (DAY 1 AND DAY 15)
     Route: 065
     Dates: start: 20151027, end: 201512
  53. VINCRISTINE SULFATE. [Suspect]
     Active Substance: VINCRISTINE SULFATE
     Indication: HODGKIN^S DISEASE
     Dosage: 2 MG ABSOLUTE, DAY 8
     Route: 065
     Dates: start: 20160120
  54. VINBLASTINE [Suspect]
     Active Substance: VINBLASTINE
     Indication: HODGKIN^S DISEASE
     Dosage: 6 MG/M2, (DAY 1 AND DAY 15)
     Route: 065
     Dates: start: 20151027, end: 201512
  55. LENOGRASTIM [Suspect]
     Active Substance: LENOGRASTIM
     Indication: NEUTROPENIA
     Dosage: 1X 34, QD, 1X DAILY.
     Route: 065
     Dates: start: 20160203, end: 20160205
  56. LENOGRASTIM [Suspect]
     Active Substance: LENOGRASTIM
     Dosage: 1X 34, QD, 1X DAILY.
     Route: 065
     Dates: start: 20160120, end: 201601
  57. LENOGRASTIM [Suspect]
     Active Substance: LENOGRASTIM
     Dosage: UNK
     Route: 065
     Dates: start: 201511, end: 201511
  58. PIRITRAMIDE [Suspect]
     Active Substance: PIRITRAMIDE
     Indication: BACK PAIN
     Dosage: 15 MG
     Route: 065
     Dates: start: 20150608
  59. BACLOFEN. [Concomitant]
     Active Substance: BACLOFEN
     Indication: PRODUCT USED FOR UNKNOWN INDICATION
     Dosage: UNK (25/20 MG IN MORNING, 20 MG IN NOON, 20 MG IN THE EVENING
     Route: 065
  60. HYDROCHLOROTHIAZIDE/VALSARTAN [Suspect]
     Active Substance: HYDROCHLOROTHIAZIDE\VALSARTAN
     Dosage: UNK
     Route: 065
     Dates: start: 20150415
  61. VALSARTAN. [Concomitant]
     Active Substance: VALSARTAN
     Indication: HYPERTENSION
     Dosage: UNK
     Route: 065
     Dates: start: 201301
  62. DOMPERIDONE MALEATE [Concomitant]
     Active Substance: DOMPERIDONE MALEATE
     Indication: PRODUCT USED FOR UNKNOWN INDICATION
     Dosage: 1 DF,SACHET, 4X DAILY
     Route: 065
  63. ENOXAPARIN SODIUM. [Concomitant]
     Active Substance: ENOXAPARIN SODIUM
     Dosage: UNK UNK, BID (1X0.5 MG)
     Route: 065
  64. HYDROCHLOROTHIAZIDE/VALSARTAN [Suspect]
     Active Substance: HYDROCHLOROTHIAZIDE\VALSARTAN
     Indication: HYPERTENSION
     Dosage: UNK
     Route: 065
     Dates: start: 20150611
  65. DICLOFENAC [Suspect]
     Active Substance: DICLOFENAC
     Indication: PRODUCT USED FOR UNKNOWN INDICATION
     Dosage: UNK
     Route: 065
  66. IBUPROFEN. [Suspect]
     Active Substance: IBUPROFEN
     Indication: PRODUCT USED FOR UNKNOWN INDICATION
     Dosage: UNK
     Route: 065
  67. DOXORUBICIN [Suspect]
     Active Substance: DOXORUBICIN
     Indication: HODGKIN^S DISEASE
     Dosage: 25 MG/M2 (DAY 1 AND DAY 15)
     Route: 065
     Dates: start: 20151027, end: 201512
  68. PROCARBAZINE [Suspect]
     Active Substance: PROCARBAZINE
     Indication: HODGKIN^S DISEASE
     Dosage: 100 MG/M2 (200 MG), DAY 1?7, DAILY
     Route: 065
     Dates: start: 20190113, end: 20190119
  69. DIAZEPAM. [Suspect]
     Active Substance: DIAZEPAM
     Indication: BACK PAIN
     Dosage: 10 MG
     Route: 065
     Dates: start: 20150608
  70. DIAZEPAM. [Concomitant]
     Active Substance: DIAZEPAM
     Dosage: 1X 2.5, QD, 1X DAILY (EVENING)
     Route: 065
  71. HYDROCHLOROTHIAZIDE/VALSARTAN [Concomitant]
     Active Substance: HYDROCHLOROTHIAZIDE\VALSARTAN
     Dosage: UNK
     Route: 065
     Dates: start: 20170725
  72. CLONIDINE. [Concomitant]
     Active Substance: CLONIDINE
     Dosage: UNK UNK, BID (1X0.5 MG)
     Route: 065
  73. ENOXAPARIN SODIUM. [Concomitant]
     Active Substance: ENOXAPARIN SODIUM
     Indication: THROMBOSIS PROPHYLAXIS
     Dosage: 40 MG, QD
     Route: 058
  74. BACLOFEN. [Concomitant]
     Active Substance: BACLOFEN
     Dosage: UNK
     Route: 048
     Dates: start: 20170704, end: 20170712
  75. BACLOFEN. [Concomitant]
     Active Substance: BACLOFEN
     Dosage: UNK (125 UG/24 HOURS 2000 UG/ML VIA PUMP)
     Route: 065
     Dates: start: 20180228

REACTIONS (73)
  - Hodgkin^s disease [Unknown]
  - Nausea [Recovering/Resolving]
  - Dysphagia [Unknown]
  - Pneumonia [Unknown]
  - Spinal pain [Unknown]
  - Cough [Unknown]
  - Monoplegia [Unknown]
  - Neurological decompensation [Unknown]
  - Respiratory failure [Unknown]
  - Loss of consciousness [Unknown]
  - Tremor [Unknown]
  - Arthralgia [Unknown]
  - Lung disorder [Unknown]
  - Sleep disorder [Unknown]
  - Inguinal hernia [Unknown]
  - Tachycardia [Unknown]
  - Tissue infiltration [Unknown]
  - Sepsis [Unknown]
  - Fatigue [Unknown]
  - Intervertebral disc disorder [Unknown]
  - Obesity [Unknown]
  - Fall [Unknown]
  - Drug hypersensitivity [Unknown]
  - Pain [Unknown]
  - Viral infection [Recovered/Resolved]
  - Back pain [Unknown]
  - General physical health deterioration [Unknown]
  - Pyrexia [Recovered/Resolved]
  - Neutropenia [Recovering/Resolving]
  - Device malfunction [Unknown]
  - Speech disorder [Unknown]
  - Fatigue [Unknown]
  - Myalgia [Unknown]
  - Candida infection [Unknown]
  - Pulmonary congestion [Unknown]
  - Tenderness [Unknown]
  - Drug intolerance [Unknown]
  - Hypochromic anaemia [Unknown]
  - Hepatic steatosis [Unknown]
  - Drug abuse [Unknown]
  - Pain in extremity [Unknown]
  - Splenomegaly [Unknown]
  - Bone pain [Unknown]
  - Fall [Unknown]
  - Hypokinesia [Unknown]
  - Somnolence [Unknown]
  - Inflammation [Unknown]
  - Dizziness [Recovering/Resolving]
  - Hyperventilation [Unknown]
  - Abdominal tenderness [Unknown]
  - Red blood cell sedimentation rate increased [Unknown]
  - Headache [Unknown]
  - Hypothyroidism [Unknown]
  - Psychogenic seizure [Unknown]
  - Uterine enlargement [Unknown]
  - Renal cyst [Unknown]
  - Fall [Recovered/Resolved]
  - Hyperhidrosis [Unknown]
  - Anaesthesia [Unknown]
  - Basal ganglion degeneration [Unknown]
  - Dyspnoea [Unknown]
  - Vomiting [Recovering/Resolving]
  - Haematoma [Unknown]
  - Pyrexia [Recovered/Resolved]
  - Muscle spasticity [Unknown]
  - Dysaesthesia [Unknown]
  - Sleep apnoea syndrome [Unknown]
  - Klebsiella infection [Unknown]
  - Lymphadenopathy [Recovering/Resolving]
  - Urinary tract infection [Unknown]
  - Hyperpyrexia [Unknown]
  - Hypoaesthesia [Recovering/Resolving]
  - Hypoaesthesia [Unknown]

NARRATIVE: CASE EVENT DATE: 2014
